FAERS Safety Report 18353677 (Version 2)
Quarter: 2020Q4

REPORT INFORMATION
  Report Type: Spontaneous
  Country: DE (occurrence: DE)
  Receive Date: 20201007
  Receipt Date: 20201127
  Transmission Date: 20210114
  Serious: Yes (Life-Threatening, Other)
  Sender: FDA-Public Use
  Company Number: DE-SUN PHARMACEUTICAL INDUSTRIES LTD-2020RR-263483

PATIENT
  Age: 55 Year
  Sex: Female
  Weight: 78 kg

DRUGS (7)
  1. OXALIPLATIN SUN 5 MG/ML KONZENTRAT ZUR HERSTELLUNG EINER [Suspect]
     Active Substance: OXALIPLATIN
     Indication: PRODUCT USED FOR UNKNOWN INDICATION
     Dosage: 160 MILLIGRAM, UNK, IN 500 ML GLUCOSE 5% START: 12:30
     Route: 042
     Dates: start: 20200901
  2. NACL [Concomitant]
     Active Substance: SODIUM CHLORIDE
     Indication: PREMEDICATION
     Dosage: 500 MILLILITERS, UNK
     Route: 065
  3. CETUXIMAB. [Concomitant]
     Active Substance: CETUXIMAB
     Indication: PRODUCT USED FOR UNKNOWN INDICATION
     Dosage: 470 MILLIGRAM, 11:00 TO 12:00
     Route: 042
     Dates: start: 20200901
  4. CLEMASTINE [Concomitant]
     Active Substance: CLEMASTINE
     Indication: PREMEDICATION
     Dosage: 2 MILLIGRAM, PREMEDICATION: DEXA, GRANISETRON, CLEMASTIN 500ML NACL + 500 ML G5%
     Route: 042
     Dates: start: 20200901
  5. DEXAMETASON [Concomitant]
     Active Substance: DEXAMETHASONE
     Indication: PREMEDICATION
     Dosage: 8 MILLIGRAM, PREMEDICATION: DEXA, GRANISETRON, CLEMASTIN 500ML NACL + 500 ML G5%
     Route: 042
     Dates: start: 20200901
  6. GRANISETRON [Concomitant]
     Active Substance: GRANISETRON
     Indication: PREMEDICATION
     Dosage: 2 MILLIGRAM, PREMEDICATION: DEXA, GRANISETRON, CLEMASTIN 500ML NACL + 500 ML G5%
     Route: 042
     Dates: start: 20200901
  7. GLUCOSE [Concomitant]
     Active Substance: DEXTROSE
     Indication: PREMEDICATION
     Dosage: 500 MILLILITERS, UNK
     Route: 065

REACTIONS (6)
  - Throat tightness [Unknown]
  - Paraesthesia [Unknown]
  - Feeling hot [Unknown]
  - Dyspnoea [Unknown]
  - Condition aggravated [Unknown]
  - Loss of consciousness [Unknown]

NARRATIVE: CASE EVENT DATE: 20200901
